FAERS Safety Report 10911373 (Version 1)
Quarter: 2015Q1

REPORT INFORMATION
  Report Type: Spontaneous
  Country: GB (occurrence: GB)
  Receive Date: 20150313
  Receipt Date: 20150313
  Transmission Date: 20150721
  Serious: Yes (Other)
  Sender: FDA-Public Use
  Company Number: PHHY2015GB025724

PATIENT
  Sex: Female

DRUGS (1)
  1. RANITIDINE [Suspect]
     Active Substance: RANITIDINE\RANITIDINE HYDROCHLORIDE
     Indication: DYSPEPSIA
     Dosage: 150 MG, BID
     Route: 065
     Dates: start: 20150126, end: 20150210

REACTIONS (1)
  - Blood potassium increased [Recovered/Resolved]

NARRATIVE: CASE EVENT DATE: 20150209
